FAERS Safety Report 17301574 (Version 1)
Quarter: 2020Q1

REPORT INFORMATION
  Report Type: Report from Study
  Country: None (occurrence: CA)
  Receive Date: 20200122
  Receipt Date: 20200122
  Transmission Date: 20200409
  Serious: Yes (Other)
  Sender: FDA-Public Use
  Company Number: CA-ABBVIE-20K-028-3236265-00

PATIENT
  Age: 40 Year
  Sex: Female

DRUGS (1)
  1. HUMIRA [Suspect]
     Active Substance: ADALIMUMAB
     Indication: RHEUMATOID ARTHRITIS
     Route: 058
     Dates: start: 20190111, end: 20191227

REACTIONS (3)
  - Rheumatoid arthritis [Recovered/Resolved]
  - Dental necrosis [Recovering/Resolving]
  - Dental restoration failure [Recovering/Resolving]

NARRATIVE: CASE EVENT DATE: 201910
